FAERS Safety Report 24107166 (Version 1)
Quarter: 2024Q3

REPORT INFORMATION
  Report Type: Spontaneous
  Country: CN (occurrence: CN)
  Receive Date: 20240718
  Receipt Date: 20240718
  Transmission Date: 20241017
  Serious: Yes (Hospitalization)
  Sender: STRIDES
  Company Number: CN-STRIDES ARCOLAB LIMITED-2024SP008755

PATIENT

DRUGS (2)
  1. DOXEPIN HYDROCHLORIDE [Suspect]
     Active Substance: DOXEPIN HYDROCHLORIDE
     Indication: Antidepressant therapy
     Dosage: UNK, (TABLET)
     Route: 065
  2. LORAZEPAM [Suspect]
     Active Substance: LORAZEPAM
     Indication: Antidepressant therapy
     Dosage: UNK
     Route: 065

REACTIONS (1)
  - Rhabdomyolysis [Unknown]
